FAERS Safety Report 20346511 (Version 1)
Quarter: 2022Q1

REPORT INFORMATION
  Report Type: Spontaneous
  Country: FR (occurrence: FR)
  Receive Date: 20220118
  Receipt Date: 20220118
  Transmission Date: 20220423
  Serious: Yes (Congenital Anomaly, Other)
  Sender: FDA-Public Use
  Company Number: FR-ABBVIE-22K-056-4229340-00

PATIENT

DRUGS (3)
  1. VALPROATE SODIUM [Suspect]
     Active Substance: VALPROATE SODIUM
     Indication: Maternal exposure timing unspecified
     Route: 064
  2. VALPROATE SODIUM [Suspect]
     Active Substance: VALPROATE SODIUM
     Indication: Maternal exposure timing unspecified
     Route: 064
  3. CLOBAZAM [Suspect]
     Active Substance: CLOBAZAM
     Indication: Maternal exposure timing unspecified
     Route: 064

REACTIONS (31)
  - Dysmorphism [Unknown]
  - Foetal anticonvulsant syndrome [Unknown]
  - Social problem [Unknown]
  - Knee deformity [Unknown]
  - Hip deformity [Unknown]
  - Arthropathy [Unknown]
  - Language disorder [Unknown]
  - Motor dysfunction [Unknown]
  - Gait disturbance [Unknown]
  - Visuospatial deficit [Unknown]
  - Foot deformity [Unknown]
  - Joint laxity [Unknown]
  - Clumsiness [Unknown]
  - Clinodactyly [Unknown]
  - Syndactyly [Unknown]
  - Brachydactyly [Unknown]
  - Psychomotor retardation [Unknown]
  - Intellectual disability [Unknown]
  - Astigmatism [Unknown]
  - Memory impairment [Unknown]
  - Emotional disorder [Unknown]
  - Gait disturbance [Unknown]
  - Ear infection [Unknown]
  - Nasopharyngitis [Unknown]
  - Emotional disorder [Unknown]
  - Hand deformity [Unknown]
  - Social problem [Unknown]
  - Learning disorder [Unknown]
  - Neurodevelopmental disorder [Unknown]
  - Anxiety [Unknown]
  - Foetal exposure during pregnancy [Unknown]

NARRATIVE: CASE EVENT DATE: 20080303
